FAERS Safety Report 5030670-9 (Version None)
Quarter: 2006Q2

REPORT INFORMATION
  Report Type: 
  Country: None (occurrence: None)
  Receive Date: 20060615
  Receipt Date: 20060602
  Transmission Date: 20061013
  Serious: Yes (Other)
  Sender: FDA-Public Use
  Company Number: 2006072096

PATIENT
  Age: 82 Year
  Sex: Female

DRUGS (3)
  1. SULFASALAZINE [Suspect]
     Indication: RHEUMATOID ARTHRITIS
     Dosage: 1 GRAM (500 MG, 2 IN 1 D) ORAL
     Route: 048
  2. NAPROSYN [Concomitant]
  3. ALL OTHER THERAPEUTIC PRODUCTS [Concomitant]

REACTIONS (1)
  - RENAL IMPAIRMENT [None]
